FAERS Safety Report 8594077 (Version 4)
Quarter: 2013Q4

REPORT INFORMATION
  Report Type: Spontaneous
  Country: FR (occurrence: FR)
  Receive Date: 20120604
  Receipt Date: 20131226
  Transmission Date: 20140711
  Serious: Yes (Hospitalization)
  Sender: FDA-Public Use
  Company Number: FR-PFIZER INC-2012129732

PATIENT
  Age: 53 Year
  Sex: Female

DRUGS (32)
  1. TAZOCILLINE [Suspect]
     Dosage: UNK
     Route: 042
     Dates: start: 20120404, end: 20120408
  2. TAZOCILLINE [Suspect]
     Dosage: UNK
     Route: 042
     Dates: start: 20120424, end: 20120425
  3. TAZOCILLINE [Suspect]
     Dosage: UNK
     Route: 042
     Dates: start: 20120501, end: 20120502
  4. TAZOCILLINE [Suspect]
     Dosage: 12 G  PER DAY
     Route: 042
     Dates: start: 20120519
  5. TRIFLUCAN [Concomitant]
     Dosage: UNK
     Route: 042
     Dates: start: 20120421, end: 20120429
  6. VANCOMYCIN [Concomitant]
     Dosage: UNK
     Route: 042
     Dates: start: 20120424, end: 20120505
  7. ROCEPHINE [Concomitant]
     Dosage: UNK
     Route: 042
     Dates: start: 20120408, end: 20120412
  8. ROCEPHINE [Concomitant]
     Dosage: UNK
     Route: 042
     Dates: start: 20120425, end: 20120429
  9. AMIKLIN [Concomitant]
     Dosage: UNK
     Route: 042
     Dates: start: 20120404, end: 20120409
  10. AMIKLIN [Concomitant]
     Dosage: UNK
     Route: 042
     Dates: start: 20120426, end: 20120504
  11. CANCIDAS [Concomitant]
     Indication: CANDIDA INFECTION
     Dosage: UNK
     Route: 042
     Dates: start: 20120416, end: 20120420
  12. CANCIDAS [Concomitant]
     Dosage: UNK
     Route: 042
     Dates: start: 20120429
  13. ERYTHROMYCIN [Concomitant]
     Dosage: UNK
     Dates: start: 20120406, end: 20120427
  14. ERYTHROMYCIN [Concomitant]
     Dosage: UNK
     Dates: start: 20120514
  15. ZYVOXID [Concomitant]
     Dosage: UNK
     Dates: start: 20120424, end: 20120424
  16. ZYVOXID [Concomitant]
     Dosage: UNK
     Dates: start: 20120504, end: 20120511
  17. SOLUPRED [Concomitant]
  18. NEORAL [Concomitant]
  19. CELLCEPT [Concomitant]
  20. TENORMINE [Concomitant]
  21. LASILIX [Concomitant]
  22. COVERSYL [Concomitant]
  23. APROVEL [Concomitant]
  24. LERCAN [Concomitant]
  25. ZOCOR [Concomitant]
  26. INEXIUM [Concomitant]
  27. ARANESP [Concomitant]
  28. CINACALCET [Concomitant]
  29. UVEDOSE [Concomitant]
  30. RENAGEL [Concomitant]
  31. LEXOMIL [Concomitant]
  32. UN-ALFA [Concomitant]

REACTIONS (2)
  - Drug reaction with eosinophilia and systemic symptoms [Recovered/Resolved]
  - Agranulocytosis [Recovered/Resolved]
